FAERS Safety Report 14892002 (Version 1)
Quarter: 2018Q2

REPORT INFORMATION
  Report Type: Spontaneous
  Country: CH (occurrence: CH)
  Receive Date: 20180514
  Receipt Date: 20180514
  Transmission Date: 20180711
  Serious: Yes (Hospitalization)
  Sender: FDA-Public Use
  Company Number: CH-SA-2018SA133865

PATIENT
  Age: 27 Year
  Sex: Male

DRUGS (8)
  1. AERIUS [Concomitant]
     Active Substance: DESLORATADINE
     Route: 065
     Dates: start: 20180416
  2. PARACETAMOL/CODEINE PHOSPHATE [Concomitant]
     Route: 065
     Dates: start: 20180418, end: 20180423
  3. IRFEN [Suspect]
     Active Substance: IBUPROFEN
     Indication: PANNICULITIS
     Route: 048
     Dates: start: 20180409, end: 20180416
  4. TAVEGYL [Concomitant]
     Active Substance: CLEMASTINE FUMARATE
     Route: 065
     Dates: start: 20180416
  5. CLEXANE [Suspect]
     Active Substance: ENOXAPARIN SODIUM
     Route: 058
     Dates: start: 201804
  6. PARACETAMOL [Suspect]
     Active Substance: ACETAMINOPHEN
     Route: 048
     Dates: start: 20180413, end: 20180416
  7. MOTILIUM [Concomitant]
     Active Substance: DOMPERIDONE
  8. NEXIUM [Suspect]
     Active Substance: ESOMEPRAZOLE MAGNESIUM
     Route: 048
     Dates: start: 20180413, end: 20180416

REACTIONS (3)
  - Rash maculo-papular [Recovered/Resolved]
  - Arthralgia [Recovered/Resolved]
  - Angioedema [Recovered/Resolved]

NARRATIVE: CASE EVENT DATE: 20180416
